FAERS Safety Report 7118913-9 (Version None)
Quarter: 2010Q4

REPORT INFORMATION
  Report Type: 
  Country: None (occurrence: None)
  Receive Date: 20101123
  Receipt Date: 20101115
  Transmission Date: 20110411
  Serious: Yes (Death, Other)
  Sender: FDA-Public Use
  Company Number: JP-ROCHE-721153

PATIENT
  Sex: Male

DRUGS (21)
  1. TOCILIZUMAB [Suspect]
     Indication: RHEUMATOID ARTHRITIS
     Route: 041
     Dates: start: 20081219, end: 20081219
  2. TOCILIZUMAB [Suspect]
     Route: 041
     Dates: start: 20090119, end: 20090119
  3. TOCILIZUMAB [Suspect]
     Route: 041
     Dates: start: 20090223, end: 20090223
  4. TOCILIZUMAB [Suspect]
     Route: 041
     Dates: start: 20090323, end: 20090323
  5. TOCILIZUMAB [Suspect]
     Route: 041
     Dates: start: 20090420, end: 20090420
  6. TOCILIZUMAB [Suspect]
     Route: 041
     Dates: start: 20090518, end: 20090518
  7. TOCILIZUMAB [Suspect]
     Route: 041
     Dates: start: 20090622, end: 20090622
  8. TOCILIZUMAB [Suspect]
     Route: 041
     Dates: start: 20090721, end: 20090721
  9. TOCILIZUMAB [Suspect]
     Route: 041
     Dates: start: 20090824, end: 20090824
  10. TOCILIZUMAB [Suspect]
     Route: 041
     Dates: start: 20090928, end: 20090928
  11. TOCILIZUMAB [Suspect]
     Route: 041
     Dates: start: 20091026, end: 20091026
  12. TOCILIZUMAB [Suspect]
     Route: 041
     Dates: start: 20091207, end: 20091207
  13. TOCILIZUMAB [Suspect]
     Route: 041
     Dates: start: 20100115, end: 20100115
  14. TOCILIZUMAB [Suspect]
     Route: 041
     Dates: start: 20100212, end: 20100212
  15. TOCILIZUMAB [Suspect]
     Route: 041
     Dates: start: 20100319, end: 20100319
  16. TOCILIZUMAB [Suspect]
     Route: 041
     Dates: start: 20100430, end: 20100430
  17. CRAVIT [Suspect]
     Route: 048
     Dates: start: 20100801
  18. RHEUMATREX [Concomitant]
     Route: 048
     Dates: start: 20081020
  19. CELCOX [Concomitant]
     Route: 048
     Dates: start: 20081016, end: 20100608
  20. SELBEX [Concomitant]
     Route: 048
     Dates: start: 20081016, end: 20100608
  21. FOLIAMIN [Concomitant]
     Dosage: DOSE FORM: PERORAL AGENT
     Route: 048
     Dates: start: 20081016, end: 20100608

REACTIONS (4)
  - LEUKAEMIA [None]
  - LEUKOPENIA [None]
  - MYELODYSPLASTIC SYNDROME [None]
  - PLATELET COUNT DECREASED [None]
